FAERS Safety Report 6912414-6 (Version None)
Quarter: 2010Q3

REPORT INFORMATION
  Report Type: 
  Country: None (occurrence: None)
  Receive Date: 20100806
  Receipt Date: 20080401
  Transmission Date: 20110219
  Serious: No
  Sender: FDA-Public Use
  Company Number: US-PFIZER INC-2008020058

PATIENT
  Sex: Female
  Weight: 62.727 kg

DRUGS (3)
  1. VFEND [Suspect]
     Indication: SCEDOSPORIUM INFECTION
     Route: 048
     Dates: start: 20070909
  2. ZITHROMAX [Concomitant]
     Indication: MYCOBACTERIUM AVIUM COMPLEX INFECTION
  3. MYAMBUTOL [Concomitant]
     Indication: MYCOBACTERIUM AVIUM COMPLEX INFECTION

REACTIONS (4)
  - DIZZINESS [None]
  - EYE DISORDER [None]
  - FUNGAL TEST POSITIVE [None]
  - VISUAL IMPAIRMENT [None]
